FAERS Safety Report 5941066-7 (Version None)
Quarter: 2008Q4

REPORT INFORMATION
  Report Type: 
  Country: None (occurrence: None)
  Receive Date: 20081104
  Receipt Date: 20081027
  Transmission Date: 20090506
  Serious: No
  Sender: FDA-Public Use
  Company Number: US-B.I. PHARMACEUTICALS,INC./RIDGEFIELD-2008-BP-16472BP

PATIENT
  Age: 66 Year
  Sex: Male

DRUGS (6)
  1. SPIRIVA [Suspect]
     Indication: CHRONIC OBSTRUCTIVE PULMONARY DISEASE
     Dosage: 18MCG
     Route: 055
     Dates: start: 20080201, end: 20081026
  2. VIAGRA [Concomitant]
     Dates: start: 20040101
  3. SERAX [Concomitant]
     Indication: ALCOHOL WITHDRAWAL SYNDROME
     Dates: start: 19830101
  4. SERAX [Concomitant]
     Indication: ANXIETY
  5. ALBUTEROL [Concomitant]
     Indication: CHRONIC OBSTRUCTIVE PULMONARY DISEASE
     Dates: start: 19900101
  6. ALBUTEROL [Concomitant]
     Indication: ASTHMA

REACTIONS (7)
  - COUGH [None]
  - DYSPNOEA [None]
  - MUSCULOSKELETAL DISCOMFORT [None]
  - NECK PAIN [None]
  - PAIN IN EXTREMITY [None]
  - PULMONARY CONGESTION [None]
  - SPUTUM DISCOLOURED [None]
